FAERS Safety Report 10384579 (Version 1)
Quarter: 2014Q3

REPORT INFORMATION
  Report Type: Spontaneous
  Country: US (occurrence: None)
  Receive Date: 20140813
  Receipt Date: 20140813
  Transmission Date: 20150326
  Serious: Yes (Other)
  Sender: FDA-Public Use
  Company Number: None

PATIENT
  Age: 40 Year
  Sex: Female
  Weight: 136.08 kg

DRUGS (5)
  1. ARTANE [Concomitant]
     Active Substance: TRIHEXYPHENIDYL HYDROCHLORIDE
  2. RISPERDAL CONSTA [Suspect]
     Active Substance: RISPERIDONE
     Indication: SCHIZOPHRENIA, PARANOID TYPE
     Dosage: ONE INJECTION A MONTH, ONCE A MONTH, INJECTION
     Dates: start: 200505, end: 200811
  3. TRAZODONE [Concomitant]
     Active Substance: TRAZODONE HYDROCHLORIDE
  4. IRON PILLS [Concomitant]
  5. LATERTA [Concomitant]

REACTIONS (2)
  - Breast enlargement [None]
  - Gait disturbance [None]

NARRATIVE: CASE EVENT DATE: 200505
